FAERS Safety Report 5806800-5 (Version None)
Quarter: 2008Q3

REPORT INFORMATION
  Report Type: 
  Country: None (occurrence: None)
  Receive Date: 20080708
  Receipt Date: 20080602
  Transmission Date: 20090109
  Serious: Yes (Other)
  Sender: FDA-Public Use
  Company Number: 230004M08NOR

PATIENT
  Sex: Female

DRUGS (1)
  1. REBIF [Suspect]
     Indication: MULTIPLE SCLEROSIS
     Dosage: 22 MCG, 3 IN 1 WEEKS
     Dates: start: 19971204, end: 20001207

REACTIONS (13)
  - AMNESIA [None]
  - BLADDER DISORDER [None]
  - BLINDNESS UNILATERAL [None]
  - CONSTIPATION [None]
  - DEPRESSION [None]
  - HYPOMANIA [None]
  - INFECTION [None]
  - MULTIPLE SCLEROSIS RELAPSE [None]
  - PANIC ATTACK [None]
  - PARALYSIS [None]
  - SLEEP DISORDER [None]
  - STRESS [None]
  - URINE OUTPUT DECREASED [None]
